FAERS Safety Report 23212884 (Version 1)
Quarter: 2023Q4

REPORT INFORMATION
  Report Type: Spontaneous
  Country: JP (occurrence: JP)
  Receive Date: 20231121
  Receipt Date: 20231121
  Transmission Date: 20240110
  Serious: Yes (Other)
  Sender: FDA-Public Use
  Company Number: JP-OTSUKA-2023_030171

PATIENT
  Age: 65 Year
  Sex: Female
  Weight: 46.4 kg

DRUGS (5)
  1. BUSULFEX [Suspect]
     Active Substance: BUSULFAN
     Indication: Cord blood transplant therapy
     Dosage: 3.2 MG/KG, DAY -7 TO -4
     Route: 065
  2. FLUDARABINE PHOSPHATE [Suspect]
     Active Substance: FLUDARABINE PHOSPHATE
     Indication: Cord blood transplant therapy
     Dosage: 22 MG/M2 (DOSE REDUCTION), DAY -7 TO -2
     Route: 065
  3. MELPHALAN [Suspect]
     Active Substance: MELPHALAN
     Indication: Cord blood transplant therapy
     Dosage: 40 MG/M2, DAY -3 TO -2
     Route: 065
  4. TACROLIMUS [Suspect]
     Active Substance: TACROLIMUS
     Indication: Prophylaxis against graft versus host disease
     Dosage: UNK
     Route: 065
  5. MYCOPHENOLATE MOFETIL [Suspect]
     Active Substance: MYCOPHENOLATE MOFETIL
     Indication: Prophylaxis against graft versus host disease
     Dosage: UNK
     Route: 065

REACTIONS (2)
  - Pre-engraftment immune reaction [Recovering/Resolving]
  - Haemophagocytic lymphohistiocytosis [Recovering/Resolving]
